FAERS Safety Report 9669138 (Version 4)
Quarter: 2014Q1

REPORT INFORMATION
  Report Type: Report from Study
  Country: FR (occurrence: FR)
  Receive Date: 20131105
  Receipt Date: 20140131
  Transmission Date: 20141002
  Serious: Yes (Hospitalization)
  Sender: FDA-Public Use
  Company Number: FR-BAYER-2013-126092

PATIENT
  Age: 59 Year
  Sex: Female
  Weight: 51 kg

DRUGS (5)
  1. REGORAFENIB [Suspect]
     Indication: SYNOVIAL SARCOMA METASTATIC
     Dosage: 160 MG
     Dates: start: 20131001, end: 20131013
  2. LEVOTHYROX [Concomitant]
     Indication: HYPOTHYROIDISM
     Dosage: 100UG/DAY
  3. DIFFU K [Concomitant]
     Indication: HYPOKALAEMIA
     Dosage: 2X 1 DAY
  4. SORIATANE [Concomitant]
     Indication: PSORIASIS
     Dosage: UNK
     Dates: start: 20130330
  5. CORDARONE [Concomitant]

REACTIONS (4)
  - Skin toxicity [Recovered/Resolved]
  - Pyrexia [None]
  - Platelet count decreased [Not Recovered/Not Resolved]
  - Purpura [Not Recovered/Not Resolved]
